FAERS Safety Report 7679119-8 (Version None)
Quarter: 2011Q3

REPORT INFORMATION
  Report Type: 
  Country: None (occurrence: None)
  Receive Date: 20110812
  Receipt Date: 20110809
  Transmission Date: 20111222
  Serious: Yes (Life-Threatening, Hospitalization, Other)
  Sender: FDA-Public Use
  Company Number: DE-AMGEN-DEUCT2010009010

PATIENT
  Age: 63 Year
  Sex: Male
  Weight: 85 kg

DRUGS (13)
  1. ESCITALOPRAM [Concomitant]
     Indication: DEPRESSION
     Dosage: 10 MG, UNK
  2. ALLOPURINOL [Concomitant]
     Indication: HYPERURICAEMIA
     Dosage: 300 MG, UNK
  3. ETANERCEPT [Suspect]
     Indication: ANKYLOSING SPONDYLITIS
     Dosage: 50 MG, QWK
     Route: 058
     Dates: start: 20100310, end: 20100101
  4. ETANERCEPT [Suspect]
     Dosage: 25 MG, 2 TIMES/WK
     Route: 058
     Dates: start: 20100101, end: 20101110
  5. NOVOTHYRAL [Concomitant]
     Indication: GOITRE
     Dosage: UNK
  6. METFORMIN HCL [Concomitant]
     Indication: TYPE 2 DIABETES MELLITUS
     Dosage: UNK MG, UNK
  7. DIOVAN HCT [Concomitant]
     Indication: HYPERTENSION
     Dosage: 25/160 MG, UNK
  8. TEBONIN                            /01003103/ [Concomitant]
     Indication: BRAIN INJURY
     Dosage: UNK
  9. CELEBREX [Concomitant]
     Dosage: UNK
  10. CARVEDILOL [Concomitant]
     Indication: HYPERTENSION
     Dosage: 12.5 MG, UNK
  11. RAMIPRIL [Concomitant]
     Indication: HYPERTENSION
     Dosage: UNK MG, UNK
  12. AQUAPHOR                           /00298701/ [Concomitant]
     Indication: HYPERURICAEMIA
     Dosage: 10 MG, UNK
  13. KELTICAN N [Concomitant]
     Indication: BRAIN INJURY
     Dosage: UNK

REACTIONS (3)
  - RENAL CELL CARCINOMA [None]
  - SQUAMOUS CELL CARCINOMA [None]
  - GOITRE [None]
